FAERS Safety Report 20070523 (Version 1)
Quarter: 2021Q4

REPORT INFORMATION
  Report Type: Report from Study
  Country: CN (occurrence: CN)
  Receive Date: 20211115
  Receipt Date: 20211115
  Transmission Date: 20220303
  Serious: Yes (Death, Other)
  Sender: FDA-Public Use
  Company Number: CN-PFIZER INC-202101562146

PATIENT

DRUGS (5)
  1. METHOTREXATE [Suspect]
     Active Substance: METHOTREXATE
     Indication: T-cell lymphoma
     Dosage: UNK, CYCLIC (2 G/M2, (6 HOURS)) DAY 1
     Route: 042
  2. DEXAMETHASONE [Suspect]
     Active Substance: DEXAMETHASONE
     Indication: T-cell lymphoma
     Dosage: 40 MG/M2, CYCLIC (DAYS 2-4)
     Route: 042
  3. IFOSFAMIDE [Suspect]
     Active Substance: IFOSFAMIDE
     Indication: T-cell lymphoma
     Dosage: 1500 MG/M2, CYCLIC (DAYS 2-4)
     Route: 042
  4. MESNA [Suspect]
     Active Substance: MESNA
     Indication: T-cell lymphoma
     Dosage: 300 MG/M2, CYCLIC (300 MG/M2 X 3, I.V. DAYS 2-4)
     Route: 042
  5. ETOPOSIDE [Suspect]
     Active Substance: ETOPOSIDE
     Indication: T-cell lymphoma
     Dosage: 100 MG/M2, CYCLIC (DAYS2-4)
     Route: 042

REACTIONS (2)
  - Sepsis [Fatal]
  - Myelosuppression [Fatal]
